FAERS Safety Report 17080575 (Version 1)
Quarter: 2019Q4

REPORT INFORMATION
  Report Type: Spontaneous
  Country: US (occurrence: US)
  Receive Date: 20191126
  Receipt Date: 20191126
  Transmission Date: 20200122
  Serious: Yes (Hospitalization)
  Sender: FDA-Public Use
  Company Number: None

PATIENT
  Sex: Male

DRUGS (7)
  1. PREGABALIN. [Concomitant]
     Active Substance: PREGABALIN
  2. SUMATRIPTIPAN [Concomitant]
  3. HYDROXYZ HCL [Concomitant]
     Active Substance: HYDROXYZINE HYDROCHLORIDE
  4. HUMIRA [Suspect]
     Active Substance: ADALIMUMAB
     Indication: SKIN DISORDER
     Dosage: ?          OTHER FREQUENCY:EVERY OTHER WEEK;?
     Route: 058
     Dates: start: 20190910
  5. DULOXETINE. [Concomitant]
     Active Substance: DULOXETINE
  6. OXYCODONE [Concomitant]
     Active Substance: OXYCODONE
  7. AMITRYPTYLIN [Concomitant]

REACTIONS (3)
  - Therapy cessation [None]
  - Lower limb fracture [None]
  - Surgery [None]
